FAERS Safety Report 10214780 (Version 1)
Quarter: 2014Q2

REPORT INFORMATION
  Report Type: Spontaneous
  Country: DE (occurrence: DE)
  Receive Date: 20140603
  Receipt Date: 20140603
  Transmission Date: 20141212
  Serious: Yes (Life-Threatening, Hospitalization)
  Sender: FDA-Public Use
  Company Number: DE-ELI_LILLY_AND_COMPANY-DE201405009195

PATIENT
  Age: 59 Year
  Sex: Male

DRUGS (9)
  1. ZYPREXA [Suspect]
     Indication: PRODUCT USED FOR UNKNOWN INDICATION
     Dosage: 5 MG, QD
     Route: 048
     Dates: start: 20130606, end: 20130613
  2. ZYPREXA [Suspect]
     Dosage: 10 MG, QD
     Route: 048
     Dates: start: 20130614, end: 20130620
  3. OMEPRAZOL                          /00661201/ [Suspect]
     Indication: PRODUCT USED FOR UNKNOWN INDICATION
     Dosage: 40 MG, QD
     Route: 048
     Dates: start: 20130605, end: 20130704
  4. OMEPRAZOL                          /00661201/ [Suspect]
     Dosage: 20 MG, QD
     Route: 048
     Dates: start: 20130606, end: 20130610
  5. QUILONORM                          /00033702/ [Concomitant]
     Dosage: 450 MG, QD
     Route: 048
     Dates: start: 20130613, end: 20130619
  6. QUILONORM                          /00033702/ [Concomitant]
     Dosage: 675 MG, QD
     Route: 048
     Dates: start: 20130620, end: 20130625
  7. QUILONORM                          /00033702/ [Concomitant]
     Dosage: 900 MG, QD
     Route: 048
     Dates: start: 20130629, end: 20130701
  8. QUILONORM                          /00033702/ [Concomitant]
     Dosage: 1125 MG, QD
     Route: 048
     Dates: start: 20130702, end: 20130706
  9. DISTRANEURINE                      /00027502/ [Concomitant]
     Dosage: UNK
     Route: 048
     Dates: start: 20130605, end: 20130610

REACTIONS (1)
  - Thrombocytopenia [Recovered/Resolved]
